FAERS Safety Report 7690918-9 (Version None)
Quarter: 2011Q3

REPORT INFORMATION
  Report Type: 
  Country: None (occurrence: None)
  Receive Date: 20110818
  Receipt Date: 20110811
  Transmission Date: 20111222
  Serious: Yes (Other)
  Sender: FDA-Public Use
  Company Number: US-SANOFI-AVENTIS-2011SA051942

PATIENT
  Age: 47 Year
  Sex: Female

DRUGS (1)
  1. LANTUS [Suspect]
     Dosage: AT BED AS DIRECTED DOSE:30 UNIT(S)
     Route: 058

REACTIONS (1)
  - RENAL TRANSPLANT [None]
